FAERS Safety Report 7776391-0 (Version None)
Quarter: 2011Q3

REPORT INFORMATION
  Report Type: 
  Country: None (occurrence: None)
  Receive Date: 20110926
  Receipt Date: 20110922
  Transmission Date: 20111222
  Serious: Yes (Death, Hospitalization)
  Sender: FDA-Public Use
  Company Number: US-PFIZER INC-2008096969

PATIENT
  Sex: Male
  Weight: 87.1 kg

DRUGS (5)
  1. OMEPRAZOLE [Concomitant]
     Dosage: DAILY
     Dates: start: 20080401, end: 20081101
  2. SUNITINIB MALATE [Suspect]
     Indication: GLIOBLASTOMA MULTIFORME
     Dosage: 12.5 MG, 1X/DAY
     Route: 048
     Dates: start: 20081010, end: 20081104
  3. LISINOPRIL [Concomitant]
     Dosage: DAILY
     Dates: start: 20080101, end: 20081101
  4. DECADRON [Concomitant]
     Dosage: TWICE DAILY
     Dates: start: 20080401, end: 20081101
  5. KEPPRA [Concomitant]
     Dosage: TWICE DAILY
     Dates: start: 20071101, end: 20081101

REACTIONS (3)
  - GLIOBLASTOMA MULTIFORME [None]
  - DISEASE PROGRESSION [None]
  - PNEUMONIA [None]
